FAERS Safety Report 5488997-2 (Version None)
Quarter: 2007Q4

REPORT INFORMATION
  Report Type: 
  Country: None (occurrence: None)
  Receive Date: 20071016
  Receipt Date: 20071001
  Transmission Date: 20080405
  Serious: Yes (Hospitalization)
  Sender: FDA-Public Use
  Company Number: 100#08#2007-03949

PATIENT
  Age: 40 Year
  Sex: Male

DRUGS (4)
  1. CARBAMAZEPINE [Suspect]
     Indication: DRUG USE FOR UNKNOWN INDICATION
  2. PHENYTOIN [Suspect]
     Indication: DRUG USE FOR UNKNOWN INDICATION
     Dosage: INTRAVENOUS
     Route: 042
  3. ACICLOVIR (ACICLOVIR) (ACICLOVIR) [Concomitant]
  4. CEFOTAXIME (CEFOTAXIME) (CEFOTAXIME) [Concomitant]

REACTIONS (4)
  - ENCEPHALITIS HERPES [None]
  - ERYTHEMA MULTIFORME [None]
  - HERPES SIMPLEX [None]
  - HYPOGAMMAGLOBULINAEMIA [None]
